FAERS Safety Report 9276662 (Version 2)
Quarter: 2013Q2

REPORT INFORMATION
  Report Type: Spontaneous
  Country: US (occurrence: US)
  Receive Date: 20130507
  Receipt Date: 20130611
  Transmission Date: 20140414
  Serious: Yes (Other)
  Sender: FDA-Public Use
  Company Number: US-CELGENEUS-163-21880-13050107

PATIENT
  Sex: Male

DRUGS (5)
  1. REVLIMID [Suspect]
     Indication: PLASMA CELL MYELOMA
     Dosage: 15 MILLIGRAM
     Route: 048
     Dates: start: 20120214, end: 201305
  2. OXYCODONE HCL [Concomitant]
     Indication: PAIN
     Route: 065
  3. SIMVASTATIN [Concomitant]
     Indication: PRODUCT USED FOR UNKNOWN INDICATION
     Route: 065
  4. ASPIRIN [Concomitant]
     Indication: PRODUCT USED FOR UNKNOWN INDICATION
     Route: 065
  5. METFORMIN HCL [Concomitant]
     Indication: PRODUCT USED FOR UNKNOWN INDICATION
     Route: 065

REACTIONS (2)
  - Plasmacytoma [Unknown]
  - Post procedural complication [Unknown]
